FAERS Safety Report 20730208 (Version 1)
Quarter: 2022Q2

REPORT INFORMATION
  Report Type: Spontaneous
  Country: US (occurrence: US)
  Receive Date: 20220420
  Receipt Date: 20220420
  Transmission Date: 20220721
  Serious: Yes (Other)
  Sender: FDA-Public Use
  Company Number: US-PFIZER INC-202200561105

PATIENT
  Age: 80 Year
  Sex: Male
  Weight: 70.76 kg

DRUGS (3)
  1. VYNDAMAX [Suspect]
     Active Substance: TAFAMIDIS
     Indication: Amyloidosis
     Dosage: 61 MG, DAILY
     Route: 048
     Dates: start: 202107
  2. BUMEX [Concomitant]
     Active Substance: BUMETANIDE
     Indication: Fluid retention
     Dosage: 1 MG, 2X/DAY
  3. LASIX [Concomitant]
     Active Substance: FUROSEMIDE
     Dosage: 20 MG, 2X/DAY

REACTIONS (3)
  - Ascites [Unknown]
  - Swelling [Recovered/Resolved]
  - Off label use [Unknown]

NARRATIVE: CASE EVENT DATE: 20210701
